FAERS Safety Report 7222766-8 (Version None)
Quarter: 2011Q1

REPORT INFORMATION
  Report Type: 
  Country: None (occurrence: None)
  Receive Date: 20110106
  Receipt Date: 20110106
  Transmission Date: 20110831
  Serious: Yes (Other)
  Sender: FDA-Public Use
  Company Number: None

PATIENT
  Age: 53 Year
  Sex: Female
  Weight: 65.7716 kg

DRUGS (6)
  1. ZYRTEC [Suspect]
     Indication: HYPERSENSITIVITY
     Dosage: 1 TABLET 1 A DAY PO
     Route: 048
     Dates: start: 20101226, end: 20101226
  2. ZYRTEC [Suspect]
     Indication: RHINORRHOEA
     Dosage: 1 TABLET 1 A DAY PO
     Route: 048
     Dates: start: 20101226, end: 20101226
  3. ZYRTEC [Suspect]
     Indication: NASOPHARYNGITIS
     Dosage: 1 TABLET 1 A DAY PO
     Route: 048
     Dates: start: 20101226, end: 20101226
  4. ZYRTEC [Suspect]
     Indication: HYPERSENSITIVITY
     Dosage: 1 TABLET 1 A DAY PO
     Route: 048
     Dates: start: 20101228, end: 20101228
  5. ZYRTEC [Suspect]
     Indication: RHINORRHOEA
     Dosage: 1 TABLET 1 A DAY PO
     Route: 048
     Dates: start: 20101228, end: 20101228
  6. ZYRTEC [Suspect]
     Indication: NASOPHARYNGITIS
     Dosage: 1 TABLET 1 A DAY PO
     Route: 048
     Dates: start: 20101228, end: 20101228

REACTIONS (1)
  - SYNCOPE [None]
